FAERS Safety Report 21076692 (Version 1)
Quarter: 2022Q3

REPORT INFORMATION
  Report Type: Spontaneous
  Country: DE (occurrence: DE)
  Receive Date: 20220713
  Receipt Date: 20220713
  Transmission Date: 20221027
  Serious: Yes (Other)
  Sender: FDA-Public Use
  Company Number: None

PATIENT
  Age: 85 Year
  Sex: Female

DRUGS (13)
  1. QUETIAPINE [Suspect]
     Active Substance: QUETIAPINE
     Indication: Product used for unknown indication
     Dosage: 25-50MG
     Dates: start: 20220405
  2. BISOPROLOL [Suspect]
     Active Substance: BISOPROLOL
     Indication: Product used for unknown indication
     Dosage: INTAKE FOR A LONG TIME , UNIT DOSE : 2.5 MG , FREQUENCY TIME : 1 DAYS
  3. VALSARTAN [Suspect]
     Active Substance: VALSARTAN
     Indication: Product used for unknown indication
     Dosage: INTAKE FOR A LONG TIME , UNIT DOSE : 80 MG , FREQUENCY TIME : 1 DAYS
     Dates: end: 20220407
  4. HYDROCHLOROTHIAZIDE [Suspect]
     Active Substance: HYDROCHLOROTHIAZIDE
     Indication: Product used for unknown indication
     Dosage: INTAKE FOR A LONG TIME , UNIT DOSE : 12.5 MG , FREQUENCY TIME : 1 DAYS
     Dates: end: 20220407
  5. MIRTAZAPINE [Suspect]
     Active Substance: MIRTAZAPINE
     Indication: Product used for unknown indication
     Dosage: UNIT DOSE : 30 MG , FREQUENCY TIME : 1 DAYS
     Dates: start: 20220406
  6. MIRTAZAPINE [Suspect]
     Active Substance: MIRTAZAPINE
     Dosage: UNIT DOSE : 15MG  FREQUENCY TIME : 1DAYS , DURATION :5 DAYS
     Dates: start: 20220419, end: 20220424
  7. MIRTAZAPINE [Suspect]
     Active Substance: MIRTAZAPINE
     Dosage: UNIT DOSE : 15 MG , FREQUENCY TIME : 1 DAYS
     Dates: start: 20220405
  8. MIRTAZAPINE [Suspect]
     Active Substance: MIRTAZAPINE
     Dosage: UNIT DOSE : 30 MG , FREQUENCY TIME : 1 DAYS
     Dates: start: 20220425
  9. MIRTAZAPINE [Suspect]
     Active Substance: MIRTAZAPINE
     Dosage: UNIT DOSE : 7.5 MG , FREQUENCY TIME : 1 DAYS , DURATION : 11 DAYS
     Dates: start: 20220407, end: 20220418
  10. PANTOPRAZOLE SODIUM [Concomitant]
     Active Substance: PANTOPRAZOLE SODIUM
     Indication: Product used for unknown indication
     Dosage: UNIT DOSE : 80 MG , FREQUENCY TIME : 1 DAYS , DURATION : 23 DAYS
     Dates: start: 20220315, end: 20220407
  11. ZOPICLONE [Concomitant]
     Active Substance: ZOPICLONE
     Indication: Product used for unknown indication
     Dosage: UNIT DOSE : 3.75 MG , FREQUENCY TIME : 1 DAYS , DURATION : 5 DAYS
     Dates: start: 20220419, end: 20220424
  12. ZOPICLONE [Concomitant]
     Active Substance: ZOPICLONE
     Dosage: UNIT DOSE : 7.5 MG , FREQUENCY TIME : 1 DAYS , DURATION :10 YRS
     Dates: start: 20120101, end: 20220418
  13. EUTHYROX [Concomitant]
     Active Substance: LEVOTHYROXINE SODIUM
     Indication: Product used for unknown indication
     Dosage: INTAKE FOR A LONG TIME, UNIT DOSE : 112 MICROGRAM , FREQUENCY TIME : 1 DAYS

REACTIONS (1)
  - Circulatory collapse [Recovered/Resolved]

NARRATIVE: CASE EVENT DATE: 20220407
